FAERS Safety Report 8560707-1 (Version None)
Quarter: 2012Q3

REPORT INFORMATION
  Report Type: 
  Country: None (occurrence: None)
  Receive Date: 20120802
  Receipt Date: 20120730
  Transmission Date: 20120928
  Serious: Yes (Other)
  Sender: FDA-Public Use
  Company Number: PHEH2012US014815

PATIENT
  Sex: Female

DRUGS (2)
  1. DIOVAN HCT [Suspect]
     Indication: HYPERTENSION
     Dosage: 1 DF (320/25 MG), UNK
     Route: 048
  2. DIOVAN [Suspect]
     Dosage: 1 DF (320/25 MG), UNK

REACTIONS (1)
  - BLINDNESS [None]
